FAERS Safety Report 20860357 (Version 1)
Quarter: 2022Q2

REPORT INFORMATION
  Report Type: Spontaneous
  Country: US (occurrence: None)
  Receive Date: 20220521
  Receipt Date: 20220521
  Transmission Date: 20220721
  Serious: Yes (Other)
  Sender: FDA-Public Use
  Company Number: None

PATIENT
  Age: 74 Year
  Sex: Female
  Weight: 74.25 kg

DRUGS (6)
  1. PAXLOVID [Suspect]
     Active Substance: NIRMATRELVIR\RITONAVIR
     Indication: COVID-19
     Dosage: FREQUENCY : TWICE A DAY;?
     Route: 048
     Dates: start: 20220506, end: 20220511
  2. Pravastatin, 40 mg one tablet every day [Concomitant]
  3. Losartan, 50 mg 2 tablets every day [Concomitant]
  4. Zyrtec, 10 mg., once a day [Concomitant]
  5. Amlodipine 2.5 mg., one tablet every day [Concomitant]
  6. Multivitamin Vitamin D [Concomitant]

REACTIONS (4)
  - COVID-19 [None]
  - Rhinorrhoea [None]
  - Sneezing [None]
  - Nasal congestion [None]

NARRATIVE: CASE EVENT DATE: 20220517
